FAERS Safety Report 15988141 (Version 2)
Quarter: 2019Q1

REPORT INFORMATION
  Report Type: Report from Study
  Country: US (occurrence: US)
  Receive Date: 20190221
  Receipt Date: 20190222
  Transmission Date: 20190418
  Serious: No
  Sender: FDA-Public Use
  Company Number: US-ROCHE-2268980

PATIENT
  Sex: Male

DRUGS (1)
  1. OCREVUS [Suspect]
     Active Substance: OCRELIZUMAB
     Indication: PRODUCT USED FOR UNKNOWN INDICATION
     Dosage: IT WAS REPORTED THAT HE RECEIVED OCRELIZUMAB ON 17/JUL/2018, 03/AUG/2018 AND 25/JAN/2019
     Route: 065

REACTIONS (2)
  - Speech disorder [Unknown]
  - Influenza [Unknown]
